FAERS Safety Report 23727888 (Version 2)
Quarter: 2024Q2

REPORT INFORMATION
  Report Type: Spontaneous
  Country: US (occurrence: US)
  Receive Date: 20240410
  Receipt Date: 20240612
  Transmission Date: 20240716
  Serious: Yes (Life-Threatening, Other)
  Sender: FDA-Public Use
  Company Number: US-MYLANLABS-2024M1032704

PATIENT
  Age: 62 Year
  Sex: Female

DRUGS (3)
  1. LIDOCAINE [Suspect]
     Active Substance: LIDOCAINE
     Indication: Anaesthesia
     Dosage: UNK, 2 CCS OF 2% LIDOCAINE
     Route: 065
  2. POLYLACTIDE, L- [Suspect]
     Active Substance: POLYLACTIDE, L-
     Indication: Dermal filler injection
     Dosage: 4 CUBIC CENTIMETERS, ADMINISTERED FOLLOWING DILUTION IN STERILE WATER AND 2 CC OF 2% LIDOCAINE
     Route: 065
  3. STERILE WATER [Concomitant]
     Active Substance: WATER
     Indication: Vehicle solution use
     Dosage: UNK, 7 CC (FOR DILUTION)
     Route: 065

REACTIONS (1)
  - Anaphylactic reaction [Recovered/Resolved]
